FAERS Safety Report 19995619 (Version 1)
Quarter: 2021Q4

REPORT INFORMATION
  Report Type: Spontaneous
  Country: GB (occurrence: US)
  Receive Date: 20211026
  Receipt Date: 20211026
  Transmission Date: 20220303
  Serious: Yes (Other)
  Sender: FDA-Public Use
  Company Number: US-GLAXOSMITHKLINE-US2021GSK218637

PATIENT
  Sex: Male

DRUGS (3)
  1. FLUTICASONE [Interacting]
     Active Substance: FLUTICASONE
     Indication: Chronic sinusitis
     Dosage: UNK
     Route: 045
  2. FLUTICASONE [Interacting]
     Active Substance: FLUTICASONE
     Indication: Rhinitis allergic
  3. RITONAVIR [Interacting]
     Active Substance: RITONAVIR
     Indication: HIV infection
     Dosage: UNK

REACTIONS (8)
  - Cushing^s syndrome [Unknown]
  - Osteonecrosis [Unknown]
  - Lethargy [Unknown]
  - Weight increased [Unknown]
  - Plethoric face [Unknown]
  - Skin striae [Unknown]
  - Hyperadrenocorticism [Unknown]
  - Potentiating drug interaction [Unknown]
